FAERS Safety Report 9237436 (Version 1)
Quarter: 2013Q2

REPORT INFORMATION
  Report Type: Spontaneous
  Country: US (occurrence: US)
  Receive Date: 20130417
  Receipt Date: 20130417
  Transmission Date: 20140414
  Serious: No
  Sender: FDA-Public Use
  Company Number: US-PFIZER INC-2013117480

PATIENT
  Age: 57 Year
  Sex: Female
  Weight: 95.24 kg

DRUGS (4)
  1. NORVASC [Suspect]
     Indication: HYPERTENSION
     Dosage: 10 MG, DAILY
     Dates: end: 201303
  2. CELEBREX [Suspect]
     Indication: ARTHRITIS
     Dosage: 200 MG, 2X/DAY
     Dates: end: 201303
  3. PREMPRO [Suspect]
     Indication: HOT FLUSH
     Dosage: UNK, DAILY
     Dates: end: 201303
  4. DIOVAN HCT [Concomitant]
     Indication: HYPERTENSION
     Dosage: 160MG/12.5MG, UNK

REACTIONS (1)
  - Nasopharyngitis [Not Recovered/Not Resolved]
